FAERS Safety Report 8987669 (Version 1)
Quarter: 2012Q4

REPORT INFORMATION
  Report Type: 
  Country: FR (occurrence: FR)
  Receive Date: 20121227
  Receipt Date: 20121227
  Transmission Date: 20130627
  Serious: Yes (Other)
  Sender: FDA-Public Use
  Company Number: FR-ASTRAZENECA-2012SE94822

PATIENT
  Age: 47 Year
  Sex: Female

DRUGS (3)
  1. PROPOFOL [Suspect]
     Indication: GENERAL ANAESTHESIA
     Route: 042
  2. SUFENTANIL [Suspect]
     Indication: GENERAL ANAESTHESIA
     Route: 042
  3. CISATRACURIUM [Suspect]
     Indication: GENERAL ANAESTHESIA
     Route: 042

REACTIONS (1)
  - VIIth nerve paralysis [Not Recovered/Not Resolved]
